FAERS Safety Report 9358680 (Version 1)
Quarter: 2013Q2

REPORT INFORMATION
  Report Type: Spontaneous
  Country: FR (occurrence: FR)
  Receive Date: 20130620
  Receipt Date: 20130620
  Transmission Date: 20140414
  Serious: Yes (Hospitalization)
  Sender: FDA-Public Use
  Company Number: FR-GLAXOSMITHKLINE-B0899372A

PATIENT
  Age: 79 Year
  Sex: Female

DRUGS (17)
  1. ZOVIRAX [Suspect]
     Indication: ENCEPHALITIS
     Dosage: 600MG THREE TIMES PER DAY
     Route: 042
     Dates: start: 20111210, end: 20111214
  2. AMOXICILLIN SODIUM [Suspect]
     Indication: ENCEPHALITIS
     Dosage: 12G PER DAY
     Route: 042
     Dates: start: 20111210, end: 20111218
  3. PIPERACILLINE [Suspect]
     Indication: PNEUMONIA PSEUDOMONAS AERUGINOSA
     Route: 042
     Dates: start: 20111218, end: 20111226
  4. NESDONAL [Suspect]
     Indication: ANAESTHESIA
     Route: 042
     Dates: start: 20111212, end: 20111218
  5. AERIUS [Concomitant]
  6. SPIRIVA [Concomitant]
  7. SERETIDE [Concomitant]
  8. ZOLPIDEM [Concomitant]
  9. ROCEPHINE [Concomitant]
     Indication: ENCEPHALITIS
     Dosage: 2G PER DAY
     Route: 042
     Dates: start: 20111210, end: 20111214
  10. DI-HYDAN [Concomitant]
     Indication: CONVULSION
     Dosage: 300MG PER DAY
     Route: 048
     Dates: start: 20111212, end: 20120119
  11. KEPPRA [Concomitant]
     Indication: CONVULSION
     Dosage: 500MG THREE TIMES PER DAY
     Route: 048
     Dates: start: 20111212
  12. GENTAMICINE [Concomitant]
     Indication: ENCEPHALITIS
     Route: 042
     Dates: start: 20111210, end: 20111214
  13. VALIUM [Concomitant]
     Indication: CONVULSION
     Dates: start: 201112
  14. GARDENAL [Concomitant]
     Indication: CONVULSION
     Dates: start: 201112
  15. RIVOTRIL [Concomitant]
     Indication: CONVULSION
     Dates: start: 201112
  16. PRODILANTIN [Concomitant]
     Indication: CONVULSION
     Dates: start: 201112
  17. TAZOCILLINE [Concomitant]
     Indication: PNEUMONIA PSEUDOMONAS AERUGINOSA
     Dates: start: 20111217, end: 201112

REACTIONS (12)
  - Drug reaction with eosinophilia and systemic symptoms [Recovered/Resolved]
  - Skin test negative [Unknown]
  - Prurigo [Recovered/Resolved]
  - Dermatitis exfoliative [Recovered/Resolved]
  - Eosinophilia [Recovered/Resolved]
  - Skin exfoliation [Recovered/Resolved]
  - Hepatic function abnormal [Recovered/Resolved]
  - Renal failure [Recovered/Resolved]
  - Aspartate aminotransferase increased [None]
  - Pseudomonas infection [None]
  - Lung disorder [None]
  - Alanine aminotransferase increased [None]
